FAERS Safety Report 6285671-X (Version None)
Quarter: 2009Q3

REPORT INFORMATION
  Report Type: 
  Country: None (occurrence: None)
  Receive Date: 20090724
  Receipt Date: 20090717
  Transmission Date: 20100115
  Serious: Yes (Hospitalization)
  Sender: FDA-Public Use
  Company Number: 2009UF0157

PATIENT
  Age: 12 Month
  Sex: Female

DRUGS (1)
  1. ULESFIA [Suspect]

REACTIONS (1)
  - ACCIDENTAL EXPOSURE [None]
